FAERS Safety Report 19476648 (Version 1)
Quarter: 2021Q2

REPORT INFORMATION
  Report Type: Spontaneous
  Country: IT (occurrence: IT)
  Receive Date: 20210630
  Receipt Date: 20210630
  Transmission Date: 20210717
  Serious: Yes (Death)
  Sender: FDA-Public Use
  Company Number: IT-ACCORD-229631

PATIENT
  Age: 81 Year
  Sex: Male
  Weight: 65 kg

DRUGS (4)
  1. MODERNA [Concomitant]
     Indication: COVID-19 IMMUNISATION
     Route: 030
     Dates: start: 20210410, end: 20210410
  2. ACCORD [OXALIPLATIN] [Suspect]
     Active Substance: OXALIPLATIN
     Indication: RECTAL CANCER STAGE IV
     Route: 041
     Dates: start: 20201214, end: 20210331
  3. MIDAZOLAM. [Concomitant]
     Active Substance: MIDAZOLAM
     Indication: SEDATIVE THERAPY
     Route: 042
     Dates: start: 20210412, end: 20210412
  4. PETHIDINE [Concomitant]
     Active Substance: MEPERIDINE
     Indication: SEDATIVE THERAPY
     Route: 042
     Dates: start: 20210412, end: 20210412

REACTIONS (5)
  - Urticaria [Fatal]
  - Dyspnoea [Fatal]
  - Oxygen saturation decreased [Fatal]
  - Pyrexia [Fatal]
  - Interstitial lung disease [Fatal]

NARRATIVE: CASE EVENT DATE: 20210415
